FAERS Safety Report 12853185 (Version 1)
Quarter: 2016Q4

REPORT INFORMATION
  Report Type: Spontaneous
  Country: US (occurrence: US)
  Receive Date: 20161017
  Receipt Date: 20161017
  Transmission Date: 20170207
  Serious: No
  Sender: FDA-Public Use
  Company Number: US-JAZZ-2016-US-014177

PATIENT
  Sex: Female

DRUGS (32)
  1. LUNESTA [Concomitant]
     Active Substance: ESZOPICLONE
  2. ZANTAC [Concomitant]
     Active Substance: RANITIDINE HYDROCHLORIDE
  3. MIRTAZAPINE. [Concomitant]
     Active Substance: MIRTAZAPINE
  4. PRILOSEC [Concomitant]
     Active Substance: OMEPRAZOLE MAGNESIUM
  5. XYREM [Suspect]
     Active Substance: SODIUM OXYBATE
     Indication: CATAPLEXY
     Dosage: DOSE ADJUSTMENTS
     Route: 048
     Dates: start: 2013, end: 201303
  6. XYREM [Suspect]
     Active Substance: SODIUM OXYBATE
     Dosage: 4.5 G, BID
     Route: 048
     Dates: start: 201303
  7. PRAZOSIN [Concomitant]
     Active Substance: PRAZOSIN
  8. VALIUM [Concomitant]
     Active Substance: DIAZEPAM
  9. NUVARING [Concomitant]
     Active Substance: ETHINYL ESTRADIOL\ETONOGESTREL
  10. WELLBUTRIN XL [Concomitant]
     Active Substance: BUPROPION HYDROCHLORIDE
  11. VOLTAREN [Concomitant]
     Active Substance: DICLOFENAC SODIUM
  12. OLANZAPINE. [Concomitant]
     Active Substance: OLANZAPINE
  13. ALBUTEROL SULFATE. [Concomitant]
     Active Substance: ALBUTEROL SULFATE
  14. CLINDAGEL [Concomitant]
     Active Substance: CLINDAMYCIN PHOSPHATE
  15. MULTIVITAMIN [Concomitant]
     Active Substance: VITAMINS
  16. TRAZODONE HYDROCHLORIDE. [Concomitant]
     Active Substance: TRAZODONE HYDROCHLORIDE
  17. OXYCODONE HYDROCHLORIDE. [Concomitant]
     Active Substance: OXYCODONE HYDROCHLORIDE
  18. ZANAFLEX [Concomitant]
     Active Substance: TIZANIDINE HYDROCHLORIDE
  19. MORPHINE SULF ER [Concomitant]
  20. ADDERALL [Concomitant]
     Active Substance: AMPHETAMINE ASPARTATE\AMPHETAMINE SULFATE\DEXTROAMPHETAMINE SACCHARATE\DEXTROAMPHETAMINE SULFATE
  21. ZYRTEC [Concomitant]
     Active Substance: CETIRIZINE HYDROCHLORIDE
  22. LIDODERM [Concomitant]
     Active Substance: LIDOCAINE
  23. TRILEPTAL [Concomitant]
     Active Substance: OXCARBAZEPINE
  24. CLARITIN [Concomitant]
     Active Substance: LORATADINE
  25. ROBAXIN [Concomitant]
     Active Substance: METHOCARBAMOL
  26. XYREM [Suspect]
     Active Substance: SODIUM OXYBATE
     Indication: NARCOLEPSY
     Dosage: 2.25 G, BID
     Route: 048
     Dates: start: 201302, end: 2013
  27. LYRICA [Concomitant]
     Active Substance: PREGABALIN
  28. SOMA [Concomitant]
     Active Substance: CARISOPRODOL
  29. GARLIC. [Concomitant]
     Active Substance: GARLIC
  30. LIDOCAINE. [Concomitant]
     Active Substance: LIDOCAINE
  31. PERCOCET [Concomitant]
     Active Substance: ACETAMINOPHEN\OXYCODONE HYDROCHLORIDE
  32. PROAIR HFA [Concomitant]
     Active Substance: ALBUTEROL SULFATE

REACTIONS (1)
  - Infection [Unknown]
